FAERS Safety Report 9800633 (Version 2)
Quarter: 2015Q4

REPORT INFORMATION
  Report Type: Report from Study
  Country: US (occurrence: US)
  Receive Date: 20140107
  Receipt Date: 20151013
  Transmission Date: 20160305
  Serious: Yes (Other)
  Sender: FDA-Public Use
  Company Number: US-ROCHE-1315005

PATIENT
  Age: 66 Year
  Sex: Female
  Weight: 181 kg

DRUGS (20)
  1. AVASTIN [Suspect]
     Active Substance: BEVACIZUMAB
     Indication: NEOVASCULAR AGE-RELATED MACULAR DEGENERATION
     Route: 065
     Dates: start: 200702, end: 200710
  2. ESTRADIOL. [Concomitant]
     Active Substance: ESTRADIOL
     Route: 065
  3. BETADINE [Concomitant]
     Active Substance: POVIDONE-IODINE
  4. OFLOXACIN. [Concomitant]
     Active Substance: OFLOXACIN
     Dosage: FOR 3 DAYS POST TREATMENT
     Route: 065
  5. LUCENTIS [Suspect]
     Active Substance: RANIBIZUMAB
     Indication: NEOVASCULAR AGE-RELATED MACULAR DEGENERATION
     Dosage: 0.5MG/(0.05 ML), MOST RECENT DOSE: 09/OCT/2013
     Route: 050
     Dates: start: 20080701
  6. LUCENTIS [Suspect]
     Active Substance: RANIBIZUMAB
     Route: 050
     Dates: start: 200711, end: 20080415
  7. LUCENTIS [Suspect]
     Active Substance: RANIBIZUMAB
     Route: 050
     Dates: start: 20110617
  8. POVIDONE IODINE [Concomitant]
     Active Substance: POVIDONE-IODINE
  9. LUCENTIS [Suspect]
     Active Substance: RANIBIZUMAB
     Route: 050
     Dates: start: 20110826
  10. TROPICAMIDE. [Concomitant]
     Active Substance: TROPICAMIDE
     Route: 065
  11. PHENYLEPHRINE [Concomitant]
     Active Substance: PHENYLEPHRINE\PHENYLEPHRINE HYDROCHLORIDE
     Route: 065
  12. PROPARACAINE [Concomitant]
     Active Substance: PROPARACAINE
     Route: 065
  13. LUCENTIS [Suspect]
     Active Substance: RANIBIZUMAB
     Route: 050
     Dates: start: 20110930
  14. LEVOTHYROXINE. [Concomitant]
     Active Substance: LEVOTHYROXINE
     Route: 065
  15. LUCENTIS [Suspect]
     Active Substance: RANIBIZUMAB
     Route: 050
     Dates: start: 20111102
  16. OMEGA 3 FATTY ACIDS [Concomitant]
     Active Substance: OMEGA-3 FATTY ACIDS
     Route: 065
  17. LUCENTIS [Suspect]
     Active Substance: RANIBIZUMAB
     Route: 050
     Dates: start: 20110720
  18. LUCENTIS [Suspect]
     Active Substance: RANIBIZUMAB
     Route: 050
     Dates: start: 20111209
  19. LIDOCAINE. [Concomitant]
     Active Substance: LIDOCAINE
     Route: 065
     Dates: start: 20110720
  20. CIPROFLOXACIN. [Concomitant]
     Active Substance: CIPROFLOXACIN
     Dosage: FOR 3 DAYS POST-OP
     Route: 047

REACTIONS (19)
  - Hypertension [Unknown]
  - Retinal vascular disorder [Unknown]
  - Detachment of macular retinal pigment epithelium [Unknown]
  - Blepharitis [Unknown]
  - Choroidal neovascularisation [Unknown]
  - Injection site erythema [Recovered/Resolved]
  - Vitreous degeneration [Unknown]
  - Detachment of retinal pigment epithelium [Unknown]
  - Retinal disorder [Unknown]
  - Asthenia [Recovered/Resolved]
  - Tremor [Recovered/Resolved]
  - Vitreous floaters [Unknown]
  - Therapeutic response decreased [Unknown]
  - Vitreous detachment [Unknown]
  - Retinal haemorrhage [Unknown]
  - Metamorphopsia [Unknown]
  - Macular fibrosis [Unknown]
  - Macular degeneration [Unknown]
  - Subretinal fibrosis [Unknown]

NARRATIVE: CASE EVENT DATE: 20130826
